FAERS Safety Report 12888304 (Version 2)
Quarter: 2016Q4

REPORT INFORMATION
  Report Type: Spontaneous
  Country: IL (occurrence: IL)
  Receive Date: 20161027
  Receipt Date: 20161118
  Transmission Date: 20170207
  Serious: Yes (Other)
  Sender: FDA-Public Use
  Company Number: IL-SUN PHARMACEUTICAL INDUSTRIES LTD-2016RR-126697

PATIENT
  Sex: Male

DRUGS (2)
  1. PENICILLIN G [Concomitant]
     Active Substance: PENICILLIN G
     Indication: AMNIOTIC CAVITY INFECTION
     Route: 064
  2. AZITHROMYCINE [Suspect]
     Active Substance: AZITHROMYCIN DIHYDRATE
     Indication: UPPER RESPIRATORY TRACT INFECTION
     Dosage: 500 MG, QD
     Route: 064

REACTIONS (3)
  - Prepyloric stenosis [Recovering/Resolving]
  - Foetal exposure during pregnancy [Unknown]
  - Neonatal aspiration [Recovering/Resolving]
